FAERS Safety Report 5661004-4 (Version None)
Quarter: 2008Q1

REPORT INFORMATION
  Report Type: 
  Country: None (occurrence: None)
  Receive Date: 20080311
  Receipt Date: 20080305
  Transmission Date: 20080703
  Serious: Yes (Hospitalization)
  Sender: FDA-Public Use
  Company Number: US-BOEHRINGER INGELHEIM GMBH, GERMANY-2008-BP-01937BP

PATIENT
  Age: 64 Year
  Sex: Male

DRUGS (8)
  1. VIRAMUNE [Suspect]
     Indication: HIV INFECTION
     Dates: start: 20071221, end: 20080125
  2. DARUNAVIR [Concomitant]
     Route: 048
     Dates: start: 20071221, end: 20080125
  3. RALTEGRAVIR [Concomitant]
     Dates: start: 20071221, end: 20080125
  4. RITONAVIR [Concomitant]
     Dates: start: 20071221, end: 20080125
  5. LISINOPRIL [Concomitant]
  6. PEPCID [Concomitant]
  7. ACYCLOVIR [Concomitant]
  8. ASPIRIN [Concomitant]

REACTIONS (3)
  - ALANINE AMINOTRANSFERASE INCREASED [None]
  - HEPATIC ENZYME INCREASED [None]
  - RASH [None]
